FAERS Safety Report 4899468-6 (Version None)
Quarter: 2006Q1

REPORT INFORMATION
  Report Type: 
  Country: None (occurrence: None)
  Receive Date: 20060118
  Receipt Date: 20050714
  Transmission Date: 20060701
  Serious: No
  Sender: FDA-Public Use
  Company Number: 2005001342

PATIENT
  Age: 49 Year
  Sex: Male

DRUGS (4)
  1. TARCEVA [Suspect]
     Indication: PANCREATIC CARCINOMA
     Dosage: 150 MG (QD), ORAL
     Route: 048
  2. GEMCITABINE [Suspect]
  3. DECADRON [Concomitant]
  4. KYTRIL [Concomitant]

REACTIONS (2)
  - PYREXIA [None]
  - RASH PUSTULAR [None]
